FAERS Safety Report 8614166-0 (Version None)
Quarter: 2012Q3

REPORT INFORMATION
  Report Type: 
  Country: None (occurrence: None)
  Receive Date: 20120823
  Receipt Date: 20120815
  Transmission Date: 20120928
  Serious: Yes (Hospitalization)
  Sender: FDA-Public Use
  Company Number: US-JNJFOC-20120308293

PATIENT
  Sex: Male
  Weight: 88 kg

DRUGS (9)
  1. ZYTIGA [Suspect]
     Indication: PROSTATE CANCER METASTATIC
     Dosage: 4 TABLETS EACH DAY BEFORE BREAKFAST
     Route: 048
  2. HYDRALAZINE HCL [Concomitant]
     Route: 065
  3. AMLODIPINE [Concomitant]
     Route: 065
  4. CARVEDILOL [Concomitant]
     Route: 065
  5. ZYTIGA [Suspect]
     Route: 048
     Dates: start: 20110110, end: 20120201
  6. CALCITRIOL [Concomitant]
     Route: 065
  7. GLIPIZIDE [Concomitant]
     Route: 065
  8. PREDNISONE TAB [Concomitant]
     Route: 065
  9. NIFEDIPINE [Concomitant]
     Route: 065

REACTIONS (3)
  - GASTRIC DISORDER [None]
  - DIARRHOEA [None]
  - DRUG DOSE OMISSION [None]
